FAERS Safety Report 8361014-2 (Version None)
Quarter: 2012Q2

REPORT INFORMATION
  Report Type: 
  Country: None (occurrence: None)
  Receive Date: 20120515
  Receipt Date: 20120502
  Transmission Date: 20120825
  Serious: Yes (Hospitalization)
  Sender: FDA-Public Use
  Company Number: CH-ROCHE-1065164

PATIENT
  Age: 47 Year
  Sex: Female

DRUGS (11)
  1. DIFLUCAN [Suspect]
     Indication: PRODUCT USED FOR UNKNOWN INDICATION
     Route: 048
     Dates: start: 20120103, end: 20120109
  2. AMILORIDE HCL AND HYDROCHLOROTHIAZIDE [Suspect]
     Indication: HYPERTENSION
     Route: 048
     Dates: end: 20120109
  3. PROGRAF [Suspect]
     Indication: ORGAN TRANSPLANT
     Route: 048
     Dates: start: 20110701, end: 20120109
  4. BELOC [Concomitant]
     Route: 048
  5. VALCYTE [Suspect]
     Indication: CYTOMEGALOVIRUS INFECTION
     Route: 048
  6. NEXIUM [Suspect]
     Indication: PRODUCT USED FOR UNKNOWN INDICATION
     Route: 048
  7. ACETAMINOPHEN [Suspect]
     Indication: PRODUCT USED FOR UNKNOWN INDICATION
     Route: 048
  8. ATOVAQUONE [Concomitant]
     Route: 048
  9. PREDNISONE TAB [Concomitant]
     Route: 048
  10. CITALOPRAM HYDROBROMIDE [Concomitant]
     Route: 048
     Dates: start: 20120102, end: 20120108
  11. MYFORTIC [Suspect]
     Indication: ORGAN TRANSPLANT
     Route: 048

REACTIONS (1)
  - RENAL FAILURE ACUTE [None]
